FAERS Safety Report 8106129 (Version 3)
Quarter: 2013Q4

REPORT INFORMATION
  Report Type: Spontaneous
  Country: US (occurrence: US)
  Receive Date: 20110825
  Receipt Date: 20131127
  Transmission Date: 20140711
  Serious: Yes (Hospitalization)
  Sender: FDA-Public Use
  Company Number: US-BAYER-2011-075450

PATIENT
  Age: 27 Year
  Sex: Female
  Weight: 81 kg

DRUGS (6)
  1. YAZ [Suspect]
  2. YASMIN [Suspect]
  3. PROZAC [Concomitant]
     Dosage: 40 MG, UNK
  4. LORTAB [Concomitant]
     Dosage: 10 MG, UNK
  5. FLEXERIL [Concomitant]
     Dosage: 20 MG, UNK
     Route: 048
  6. IBUPROFEN [Concomitant]
     Dosage: 800 MG, UNK
     Route: 048

REACTIONS (7)
  - Gallbladder injury [None]
  - Injury [None]
  - Pain [None]
  - Jaundice [None]
  - Liver injury [None]
  - Renal injury [None]
  - Cholecystitis chronic [None]
